FAERS Safety Report 4291467-0 (Version None)
Quarter: 2004Q1

REPORT INFORMATION
  Report Type: 
  Country: None (occurrence: None)
  Receive Date: 20040209
  Receipt Date: 20040209
  Transmission Date: 20041129
  Serious: Yes (Hospitalization)
  Sender: FDA-Public Use
  Company Number: None

PATIENT
  Sex: Female
  Weight: 73.0291 kg

DRUGS (4)
  1. CYTOXAN [Suspect]
     Indication: BREAST CANCER
     Dosage: 1100 MG IV Q 2 W
     Route: 042
     Dates: start: 20031229
  2. CYTOXAN [Suspect]
     Indication: BREAST CANCER
     Dosage: 1100 MG IV Q 2 W
     Route: 042
     Dates: start: 20040109
  3. CYTOXAN [Suspect]
     Indication: BREAST CANCER
     Dosage: 1100 MG IV Q 2 W
     Route: 042
     Dates: start: 20040123
  4. DECADRON [Concomitant]

REACTIONS (3)
  - BODY TEMPERATURE INCREASED [None]
  - PAIN [None]
  - RASH [None]
